FAERS Safety Report 18763284 (Version 2)
Quarter: 2022Q1

REPORT INFORMATION
  Report Type: Spontaneous
  Country: CA (occurrence: CA)
  Receive Date: 20210120
  Receipt Date: 20220304
  Transmission Date: 20220423
  Serious: Yes (Death, Hospitalization, Other)
  Sender: FDA-Public Use
  Company Number: None

PATIENT
  Age: 60 Year
  Sex: Male

DRUGS (2)
  1. CARBOPLATIN [Suspect]
     Active Substance: CARBOPLATIN
     Indication: Glioblastoma
     Dosage: 1 EVERY 1 MONTHS
     Route: 013
  2. TEMOZOLOMIDE [Concomitant]
     Active Substance: TEMOZOLOMIDE

REACTIONS (10)
  - Dysgeusia [Fatal]
  - General physical health deterioration [Fatal]
  - Hypophagia [Fatal]
  - Nausea [Fatal]
  - Neoplasm progression [Fatal]
  - Product use issue [Fatal]
  - Quality of life decreased [Fatal]
  - Taste disorder [Fatal]
  - Weight decreased [Fatal]
  - Off label use [Unknown]
